FAERS Safety Report 8245315-4 (Version None)
Quarter: 2012Q1

REPORT INFORMATION
  Report Type: 
  Country: None (occurrence: None)
  Receive Date: 20120329
  Receipt Date: 20120321
  Transmission Date: 20120608
  Serious: Yes (Hospitalization)
  Sender: FDA-Public Use
  Company Number: US-ELI_LILLY_AND_COMPANY-US201111009026

PATIENT
  Sex: Female

DRUGS (2)
  1. FORTEO [Suspect]
     Dosage: UNK, UNKNOWN
     Route: 065
  2. FORTEO [Suspect]
     Dosage: UNK, UNKNOWN

REACTIONS (6)
  - DIZZINESS [None]
  - ELECTROLYTE IMBALANCE [None]
  - TINNITUS [None]
  - INFLUENZA [None]
  - VERTIGO [None]
  - BALANCE DISORDER [None]
